FAERS Safety Report 7778050-7 (Version None)
Quarter: 2011Q3

REPORT INFORMATION
  Report Type: 
  Country: None (occurrence: None)
  Receive Date: 20110926
  Receipt Date: 20110926
  Transmission Date: 20111222
  Serious: Yes (Hospitalization)
  Sender: FDA-Public Use
  Company Number: CA-ABBOTT-11P-028-0857104-00

PATIENT
  Sex: Female
  Weight: 135.29 kg

DRUGS (11)
  1. FURONSEMIDE [Concomitant]
     Indication: PSORIATIC ARTHROPATHY
     Route: 048
     Dates: start: 20100101
  2. HUMIRA [Suspect]
     Indication: PSORIASIS
     Route: 058
     Dates: start: 20100603, end: 20110802
  3. ATACAND [Concomitant]
     Indication: CARDIOVASCULAR EVENT PROPHYLAXIS
     Route: 048
     Dates: start: 20090101
  4. PREDNISONE [Concomitant]
     Indication: PSORIATIC ARTHROPATHY
     Route: 048
     Dates: start: 20100101
  5. ASPIRIN [Concomitant]
     Indication: CARDIOVASCULAR EVENT PROPHYLAXIS
     Route: 048
     Dates: start: 20090101
  6. METHOTREXATE [Concomitant]
     Indication: PSORIATIC ARTHROPATHY
     Route: 048
     Dates: start: 20100101, end: 20110802
  7. FOLIC ACID [Concomitant]
     Indication: PSORIATIC ARTHROPATHY
     Route: 048
     Dates: start: 20100101, end: 20110802
  8. MELOXICAM [Concomitant]
     Indication: PSORIATIC ARTHROPATHY
     Route: 048
     Dates: start: 20100101
  9. VENLAFAXINE HYDROCHLORIDE [Concomitant]
     Indication: ANXIETY
     Route: 048
     Dates: start: 20070101
  10. BISOPROLOL FUMARATE [Concomitant]
     Indication: ARRHYTHMIA
     Route: 048
     Dates: start: 20090101
  11. HUMULIN R [Concomitant]
     Indication: DIABETES MELLITUS
     Dosage: 74 UNITS IN AM/60 UNITS IN PM
     Route: 058
     Dates: start: 19860101

REACTIONS (2)
  - GASTRITIS [None]
  - DIARRHOEA [None]
